FAERS Safety Report 5460455-0 (Version None)
Quarter: 2007Q3

REPORT INFORMATION
  Report Type: 
  Country: None (occurrence: None)
  Receive Date: 20070919
  Receipt Date: 20070909
  Transmission Date: 20080115
  Serious: Yes (Hospitalization, Other)
  Sender: FDA-Public Use
  Company Number: US-PFIZER INC-2004097171

PATIENT
  Sex: Female
  Weight: 68 kg

DRUGS (4)
  1. LIPITOR [Suspect]
     Indication: TYPE IIA HYPERLIPIDAEMIA
     Route: 048
  2. ZOCOR [Suspect]
  3. PROPRANOLOL [Concomitant]
     Route: 048
  4. COZAAR [Concomitant]
     Route: 048

REACTIONS (28)
  - ABNORMAL BEHAVIOUR [None]
  - AMNESIA [None]
  - ARTERIAL SPASM [None]
  - ASTHENIA [None]
  - BLOOD CREATINE PHOSPHOKINASE INCREASED [None]
  - CATHETERISATION CARDIAC [None]
  - CEREBRAL ISCHAEMIA [None]
  - CEREBROVASCULAR ACCIDENT [None]
  - CHOLELITHIASIS [None]
  - COGNITIVE DISORDER [None]
  - DEHYDRATION [None]
  - DEMENTIA ALZHEIMER'S TYPE [None]
  - DISORIENTATION [None]
  - DYSARTHRIA [None]
  - DYSPHAGIA [None]
  - FALL [None]
  - GASTRITIS [None]
  - GASTROINTESTINAL DISORDER [None]
  - GASTROOESOPHAGEAL REFLUX DISEASE [None]
  - GLOBAL AMNESIA [None]
  - IMPAIRED GASTRIC EMPTYING [None]
  - LOSS OF CONSCIOUSNESS [None]
  - MYALGIA [None]
  - OESOPHAGEAL ULCER [None]
  - POISONING [None]
  - STUPOR [None]
  - UNEVALUABLE EVENT [None]
  - VOMITING [None]
